FAERS Safety Report 12224844 (Version 1)
Quarter: 2016Q1

REPORT INFORMATION
  Report Type: Spontaneous
  Country: US (occurrence: US)
  Receive Date: 20160331
  Receipt Date: 20160331
  Transmission Date: 20160526
  Serious: No
  Sender: FDA-Public Use
  Company Number: US-PFIZER INC-2016152648

PATIENT
  Age: 79 Year
  Sex: Female

DRUGS (1)
  1. LYRICA [Suspect]
     Active Substance: PREGABALIN
     Indication: DIABETIC NEUROPATHY
     Dosage: 50 MG, UNK
     Dates: start: 201508, end: 20160305

REACTIONS (3)
  - Face oedema [Recovering/Resolving]
  - Oral fungal infection [Recovering/Resolving]
  - Oral pain [Recovering/Resolving]

NARRATIVE: CASE EVENT DATE: 201509
